FAERS Safety Report 6096397-X (Version None)
Quarter: 2009Q1

REPORT INFORMATION
  Report Type: 
  Country: None (occurrence: None)
  Receive Date: 20090227
  Receipt Date: 20081209
  Transmission Date: 20090719
  Serious: No
  Sender: FDA-Public Use
  Company Number: A0759477A

PATIENT
  Age: 80 Year
  Sex: Female

DRUGS (5)
  1. LAMICTAL [Suspect]
     Indication: BIPOLAR DISORDER
     Dosage: 75MG PER DAY
     Route: 048
     Dates: start: 20080908
  2. UNKNOWN [Concomitant]
  3. PRILOSEC [Concomitant]
  4. ADVAIR HFA [Concomitant]
  5. FLONASE [Concomitant]

REACTIONS (5)
  - BUCCAL MUCOSAL ROUGHENING [None]
  - CONSTIPATION [None]
  - DRY MOUTH [None]
  - FEELING ABNORMAL [None]
  - TOOTH DISCOLOURATION [None]
